FAERS Safety Report 10519451 (Version 1)
Quarter: 2014Q4

REPORT INFORMATION
  Report Type: Spontaneous
  Country: US (occurrence: None)
  Receive Date: 20141014
  Receipt Date: 20141014
  Transmission Date: 20150528
  Serious: No
  Sender: FDA-Public Use
  Company Number: None

PATIENT
  Age: 74 Year
  Sex: Female

DRUGS (6)
  1. REVLIMID [Suspect]
     Active Substance: LENALIDOMIDE
     Indication: PLASMA CELL MYELOMA
     Route: 048
     Dates: start: 20130701
  2. REVLIMID [Suspect]
     Active Substance: LENALIDOMIDE
     Indication: PLASMA CELL MYELOMA
     Dosage: 25 MG DAILY DAYS 1-4 ORALLY
     Route: 048
     Dates: start: 20130625, end: 20130630
  3. FAMOTIDINE. [Concomitant]
     Active Substance: FAMOTIDINE
  4. LORAZEPAM. [Concomitant]
     Active Substance: LORAZEPAM
  5. ACYCLOVIR. [Concomitant]
     Active Substance: ACYCLOVIR
  6. DEXAMETHASONE. [Concomitant]
     Active Substance: DEXAMETHASONE

REACTIONS (1)
  - Diarrhoea [None]
